FAERS Safety Report 9651026 (Version 2)
Quarter: 2014Q2

REPORT INFORMATION
  Report Type: Spontaneous
  Country: MX (occurrence: MX)
  Receive Date: 20131029
  Receipt Date: 20140630
  Transmission Date: 20141212
  Serious: Yes (Other)
  Sender: FDA-Public Use
  Company Number: PHHY2013MX121065

PATIENT
  Age: 90 Year
  Sex: Female

DRUGS (6)
  1. HYDERGINA [Suspect]
     Indication: NERVOUS SYSTEM DISORDER
     Dosage: 1.5 MG, UNK
  2. HYDERGINA [Suspect]
     Dosage: 4.5 MG, DAILY
     Route: 048
     Dates: start: 200610, end: 201307
  3. VITALUX PLUS [Suspect]
     Dosage: 1 UKN, DAILY
     Dates: start: 200810
  4. NORVASC [Concomitant]
     Indication: HYPERTENSION
     Dosage: 5 MG, DAILY
     Route: 048
     Dates: start: 200810
  5. TIAMINAL B12 [Concomitant]
     Indication: VITAMIN SUPPLEMENTATION
     Dosage: 5 MG, DAILY
     Route: 048
     Dates: start: 2013
  6. SERMION [Concomitant]
     Indication: NERVOUS SYSTEM DISORDER
     Dosage: 10 MG, DAILY
     Route: 048
     Dates: start: 201308

REACTIONS (5)
  - Ischaemic stroke [Recovered/Resolved]
  - Headache [Recovered/Resolved]
  - Malaise [Recovered/Resolved]
  - Dizziness [Recovered/Resolved]
  - Incorrect dose administered [Recovered/Resolved]
